FAERS Safety Report 20982860 (Version 1)
Quarter: 2022Q2

REPORT INFORMATION
  Report Type: Report from Study
  Country: US (occurrence: US)
  Receive Date: 20220620
  Receipt Date: 20220620
  Transmission Date: 20220721
  Serious: Yes (Death, Life-Threatening, Hospitalization, Other)
  Sender: FDA-Public Use
  Company Number: US-BRISTOL-MYERS SQUIBB COMPANY-2022-056440

PATIENT
  Age: 49 Year
  Sex: Female

DRUGS (13)
  1. NIVOLUMAB [Suspect]
     Active Substance: NIVOLUMAB
     Indication: Lung neoplasm malignant
     Route: 042
     Dates: start: 20220406, end: 20220502
  2. SERINE/THREONINE-PROTEIN KINASE 19 [Suspect]
     Active Substance: SERINE/THREONINE-PROTEIN KINASE 19
     Indication: Lung neoplasm malignant
     Dosage: 1 X 10 E 6 PFU/ML PER PROTOCOL (TOTAL VOLUME 2 ML)
     Route: 036
     Dates: start: 20220322, end: 20220322
  3. SERINE/THREONINE-PROTEIN KINASE 19 [Suspect]
     Active Substance: SERINE/THREONINE-PROTEIN KINASE 19
     Dosage: 1 X10E7 PFU/ML
     Route: 036
     Dates: start: 20220502, end: 20220502
  4. PROMETHAZINE [Concomitant]
     Active Substance: PROMETHAZINE HYDROCHLORIDE
     Indication: Product used for unknown indication
     Route: 042
     Dates: start: 20220519, end: 20220527
  5. ALVIMOPAN [Concomitant]
     Active Substance: ALVIMOPAN
     Indication: Product used for unknown indication
     Route: 048
  6. LOVENOX [Concomitant]
     Active Substance: ENOXAPARIN SODIUM
     Indication: Product used for unknown indication
     Dosage: 12 DAYS
     Route: 058
  7. CYMBALTA [Concomitant]
     Active Substance: DULOXETINE HYDROCHLORIDE
     Indication: Product used for unknown indication
     Route: 048
     Dates: start: 20220515, end: 20220527
  8. ZYPREXA [Concomitant]
     Active Substance: OLANZAPINE
     Indication: Product used for unknown indication
     Route: 048
     Dates: start: 20220523, end: 20220527
  9. PANTOPRAZOLE [Concomitant]
     Active Substance: PANTOPRAZOLE
     Indication: Product used for unknown indication
     Route: 042
     Dates: start: 20220519, end: 20220527
  10. LORAZEPAM [Concomitant]
     Active Substance: LORAZEPAM
     Indication: Product used for unknown indication
     Route: 042
     Dates: start: 20220523, end: 20220527
  11. RACEPINEPHRINE [Concomitant]
     Active Substance: RACEPINEPHRINE
     Indication: Product used for unknown indication
     Route: 055
     Dates: start: 20220521, end: 20220521
  12. DEXMEDETOMIDINE [Concomitant]
     Active Substance: DEXMEDETOMIDINE
     Indication: Product used for unknown indication
     Route: 042
     Dates: start: 20220521, end: 20220527
  13. NOREPINEPHRINE [Concomitant]
     Active Substance: NOREPINEPHRINE
     Indication: Product used for unknown indication
     Route: 042
     Dates: start: 20220525, end: 20220527

REACTIONS (3)
  - Malignant neoplasm progression [Fatal]
  - Intussusception [Unknown]
  - Acute kidney injury [Unknown]

NARRATIVE: CASE EVENT DATE: 20220515
